FAERS Safety Report 15282097 (Version 3)
Quarter: 2019Q1

REPORT INFORMATION
  Report Type: Spontaneous
  Country: JP (occurrence: JP)
  Receive Date: 20180815
  Receipt Date: 20190124
  Transmission Date: 20190417
  Serious: Yes (Death, Life-Threatening)
  Sender: FDA-Public Use
  Company Number: JP-AMGEN-JPNSP2018112897

PATIENT
  Age: 24 Year
  Sex: Female

DRUGS (6)
  1. ETOPOSIDE. [Suspect]
     Active Substance: ETOPOSIDE
     Dosage: 121 MG, UNK
     Route: 041
     Dates: start: 20180423, end: 20180525
  2. BLEOMYCIN [Suspect]
     Active Substance: BLEOMYCIN SULFATE
     Indication: OVARIAN DYSGERMINOMA STAGE IV
     Dosage: 30 MG, UNK
     Route: 041
     Dates: start: 20180226, end: 20180521
  3. CISPLATIN. [Suspect]
     Active Substance: CISPLATIN
     Dosage: 19 MG, UNK
     Route: 041
     Dates: start: 20180326, end: 20180525
  4. GRAN [Suspect]
     Active Substance: FILGRASTIM
     Indication: FEBRILE NEUTROPENIA
     Dosage: 75 MG, UNK
     Route: 058
     Dates: start: 20180313, end: 20180606
  5. ETOPOSIDE. [Suspect]
     Active Substance: ETOPOSIDE
     Indication: OVARIAN DYSGERMINOMA STAGE IV
     Dosage: 124 MG, UNK
     Route: 041
     Dates: start: 20180226, end: 20180330
  6. CISPLATIN. [Suspect]
     Active Substance: CISPLATIN
     Indication: OVARIAN DYSGERMINOMA STAGE IV
     Dosage: 25 MG, UNK
     Route: 041
     Dates: start: 20180226, end: 20180302

REACTIONS (1)
  - Interstitial lung disease [Fatal]

NARRATIVE: CASE EVENT DATE: 20180720
